FAERS Safety Report 13762176 (Version 1)
Quarter: 2017Q3

REPORT INFORMATION
  Report Type: Spontaneous
  Country: US (occurrence: US)
  Receive Date: 20170718
  Receipt Date: 20170718
  Transmission Date: 20171127
  Serious: Yes (Other)
  Sender: FDA-Public Use
  Company Number: US-STRIDES ARCOLAB LIMITED-2017SP010707

PATIENT

DRUGS (1)
  1. HYDRALAZINE HCL [Suspect]
     Active Substance: HYDRALAZINE HYDROCHLORIDE
     Indication: PRODUCT USED FOR UNKNOWN INDICATION
     Dosage: 100 MG, TID
     Route: 065

REACTIONS (19)
  - Anti-neutrophil cytoplasmic antibody positive vasculitis [Unknown]
  - Cheilitis [Recovered/Resolved]
  - Lip ulceration [Recovered/Resolved]
  - Gastrointestinal haemorrhage [Recovered/Resolved]
  - Blister [Recovered/Resolved]
  - Obstructive airways disorder [Unknown]
  - Dyspnoea [Unknown]
  - Odynophagia [Unknown]
  - Laryngeal oedema [Recovered/Resolved]
  - Malaise [Unknown]
  - Haemorrhage [Recovered/Resolved]
  - Tongue ulceration [Recovered/Resolved]
  - Mucocutaneous rash [Recovered/Resolved]
  - Rash pustular [Recovered/Resolved]
  - Eyelid oedema [Recovered/Resolved]
  - Eyelid rash [Recovered/Resolved]
  - Tongue eruption [Recovered/Resolved]
  - Muscular weakness [Unknown]
  - Epiglottis ulcer [Recovered/Resolved]
